FAERS Safety Report 17311285 (Version 1)
Quarter: 2020Q1

REPORT INFORMATION
  Report Type: Spontaneous
  Country: US (occurrence: US)
  Receive Date: 20200123
  Receipt Date: 20200123
  Transmission Date: 20200409
  Serious: Yes (Hospitalization)
  Sender: FDA-Public Use
  Company Number: US-ROCHE-2240895

PATIENT
  Sex: Male

DRUGS (6)
  1. TACROLIMUS. [Concomitant]
     Active Substance: TACROLIMUS
  2. RITUXIMAB. [Suspect]
     Active Substance: RITUXIMAB
     Dosage: SECOND COURSE FOLLOWING RELAPSE
     Route: 041
  3. RITUXIMAB. [Suspect]
     Active Substance: RITUXIMAB
     Dosage: THIRD COURSE WITH NO EFFECT.
     Route: 041
  4. RITUXIMAB. [Suspect]
     Active Substance: RITUXIMAB
     Indication: PEMPHIGUS
     Dosage: TWO 1G INFUSIONS TWO WEEKS APART (FIRST COURSE)
     Route: 041
  5. MYCOPHENOLATE MOFETIL. [Concomitant]
     Active Substance: MYCOPHENOLATE MOFETIL
     Indication: PEMPHIGUS
     Route: 065
  6. METHYLPREDNISOLONE. [Concomitant]
     Active Substance: METHYLPREDNISOLONE
     Indication: PEMPHIGUS
     Route: 042

REACTIONS (2)
  - Treatment failure [Unknown]
  - Serum sickness-like reaction [Unknown]
